FAERS Safety Report 8299341-X (Version None)
Quarter: 2012Q2

REPORT INFORMATION
  Report Type: 
  Country: None (occurrence: None)
  Receive Date: 20120419
  Receipt Date: 20120413
  Transmission Date: 20120825
  Serious: Yes (Life-Threatening, Hospitalization, Other)
  Sender: FDA-Public Use
  Company Number: ES-ELI_LILLY_AND_COMPANY-ES201203004773

PATIENT
  Age: 40 Year
  Sex: Female

DRUGS (5)
  1. ACETYLSALICYLIC ACID SRT [Concomitant]
     Dosage: 100 MG, QD
  2. PRASUGREL HYDROCHLORIDE [Suspect]
     Dosage: 60 MG, LOADING DOSE
  3. CLOPIDOGREL [Concomitant]
     Dosage: 300 MG, SINGLE LOADING DOSE
  4. PRASUGREL HYDROCHLORIDE [Suspect]
     Dosage: 10 MG, QD
  5. CLOPIDOGREL [Concomitant]
     Dosage: UNK, UNKNOWN

REACTIONS (5)
  - CARDIOGENIC SHOCK [None]
  - HYPERSENSITIVITY [None]
  - PYREXIA [None]
  - HEPATITIS [None]
  - FREQUENT BOWEL MOVEMENTS [None]
